FAERS Safety Report 7169706-8 (Version None)
Quarter: 2010Q4

REPORT INFORMATION
  Report Type: 
  Country: None (occurrence: None)
  Receive Date: 20101217
  Receipt Date: 20101207
  Transmission Date: 20110411
  Serious: Yes (Other)
  Sender: FDA-Public Use
  Company Number: GB-PFIZER INC-GB-WYE-G06642510

PATIENT
  Age: 17 Year
  Sex: Female

DRUGS (2)
  1. RAPAMUNE [Suspect]
     Dosage: UNK
  2. PREDNISONE [Suspect]

REACTIONS (1)
  - TYPE 1 DIABETES MELLITUS [None]
